FAERS Safety Report 6434866-0 (Version None)
Quarter: 2009Q4

REPORT INFORMATION
  Report Type: 
  Country: None (occurrence: None)
  Receive Date: 20091110
  Receipt Date: 20091102
  Transmission Date: 20100525
  Serious: Yes (Hospitalization)
  Sender: FDA-Public Use
  Company Number: DE-TEVA-214202ISR

PATIENT
  Age: 39 Year
  Sex: Female

DRUGS (3)
  1. FUROSEMIDE [Suspect]
     Dates: start: 20070527, end: 20070627
  2. BROMPERIDOL [Interacting]
     Dates: start: 20070527, end: 20070627
  3. CLOZAPINE [Interacting]
     Dates: start: 20070527, end: 20070627

REACTIONS (2)
  - DRUG INTERACTION [None]
  - ELECTROCARDIOGRAM QT PROLONGED [None]
